FAERS Safety Report 8827627 (Version 1)
Quarter: 2012Q4

REPORT INFORMATION
  Report Type: 
  Country: US (occurrence: US)
  Receive Date: 20121008
  Receipt Date: 20121008
  Transmission Date: 20130627
  Serious: Yes (Hospitalization)
  Sender: FDA-Public Use
  Company Number: US-SANOFI-AVENTIS-2012SA071249

PATIENT
  Sex: Female

DRUGS (3)
  1. LANTUS SOLOSTAR [Suspect]
     Dosage: Dose:25 unit(s)
     Route: 058
     Dates: start: 201202
  2. SOLOSTAR [Suspect]
     Dates: start: 201202
  3. NOVOLOG [Concomitant]

REACTIONS (1)
  - Hospitalisation [Unknown]
